FAERS Safety Report 4997413-6 (Version None)
Quarter: 2006Q2

REPORT INFORMATION
  Report Type: 
  Country: None (occurrence: None)
  Receive Date: 20060509
  Receipt Date: 20060504
  Transmission Date: 20061013
  Serious: Yes (Life-Threatening)
  Sender: FDA-Public Use
  Company Number: FR-MERCK-0605FRA00013

PATIENT
  Age: 53 Year
  Sex: Female

DRUGS (11)
  1. INDOCIN [Suspect]
     Indication: PAIN
     Route: 048
     Dates: start: 20060322, end: 20060322
  2. INDOCIN [Suspect]
     Indication: ANKYLOSING SPONDYLITIS
     Route: 048
     Dates: start: 20060322, end: 20060322
  3. PHENYLBUTAZONE [Suspect]
     Indication: PAIN
     Route: 048
     Dates: end: 20060401
  4. PHENYLBUTAZONE [Suspect]
     Indication: ANKYLOSING SPONDYLITIS
     Route: 048
     Dates: end: 20060401
  5. METHOTREXATE [Suspect]
     Indication: ANKYLOSING SPONDYLITIS
     Route: 048
     Dates: start: 20060320, end: 20060329
  6. OMEPRAZOLE [Suspect]
     Indication: PROPHYLAXIS AGAINST GASTROINTESTINAL ULCER
     Route: 048
  7. IRBESARTAN [Concomitant]
     Indication: HYPERTENSION
     Route: 048
  8. PROPRANOLOL HYDROCHLORIDE [Concomitant]
     Indication: TACHYCARDIA
     Route: 048
  9. OXAZEPAM [Concomitant]
     Indication: ANXIETY
     Route: 048
  10. FOLIC ACID [Concomitant]
     Indication: VITAMIN SUPPLEMENTATION
     Route: 048
     Dates: start: 20060320
  11. SULFASALAZINE [Concomitant]
     Indication: ANKYLOSING SPONDYLITIS
     Route: 048
     Dates: end: 20060319

REACTIONS (5)
  - BONE MARROW FAILURE [None]
  - GENERAL PHYSICAL HEALTH DETERIORATION [None]
  - HEPATIC FAILURE [None]
  - HYPONATRAEMIA [None]
  - RENAL FAILURE [None]
